FAERS Safety Report 4499186-2 (Version None)
Quarter: 2004Q4

REPORT INFORMATION
  Report Type: 
  Country: None (occurrence: None)
  Receive Date: 20041111
  Receipt Date: 20040223
  Transmission Date: 20050328
  Serious: Yes (Other)
  Sender: FDA-Public Use
  Company Number: PHNU2004DE00986

PATIENT
  Age: 45 Year
  Sex: Male

DRUGS (1)
  1. LAMISIL [Suspect]
     Indication: ERYSIPELAS
     Dates: start: 20030820

REACTIONS (2)
  - MEAN CELL VOLUME INCREASED [None]
  - TRANSFERRIN INCREASED [None]
